FAERS Safety Report 23046202 (Version 1)
Quarter: 2023Q4

REPORT INFORMATION
  Report Type: Other
  Country: TR (occurrence: None)
  Receive Date: 20231009
  Receipt Date: 20231009
  Transmission Date: 20240110
  Serious: Yes (Other)
  Sender: FDA-Public Use
  Company Number: TR-ROCHE-3435748

PATIENT
  Age: 73 Year
  Sex: Female

DRUGS (3)
  1. BEVACIZUMAB [Suspect]
     Active Substance: BEVACIZUMAB
     Indication: Retinal haemorrhage
     Dosage: 1.25 MG/0.05 ML
     Route: 050
  2. BEVACIZUMAB [Suspect]
     Active Substance: BEVACIZUMAB
     Route: 050
  3. ALTEPLASE [Suspect]
     Active Substance: ALTEPLASE
     Indication: Retinal haemorrhage
     Dosage: 25 MICROG/0.1 OR 0.2 ML
     Route: 050

REACTIONS (3)
  - Retinal detachment [Unknown]
  - Off label use [Unknown]
  - Off label use [Unknown]
